FAERS Safety Report 15765954 (Version 7)
Quarter: 2020Q4

REPORT INFORMATION
  Report Type: Report from Study
  Country: None (occurrence: AU)
  Receive Date: 20181227
  Receipt Date: 20201027
  Transmission Date: 20210113
  Serious: Yes (Other)
  Sender: FDA-Public Use
  Company Number: AU-ABBVIE-18K-008-2603539-00

PATIENT
  Age: 48 Year
  Sex: Male
  Weight: 97 kg

DRUGS (3)
  1. PURINETHOL [Suspect]
     Active Substance: MERCAPTOPURINE
     Indication: PRODUCT USED FOR UNKNOWN INDICATION
     Route: 065
  2. HUMIRA [Suspect]
     Active Substance: ADALIMUMAB
     Indication: CROHN^S DISEASE
     Route: 058
  3. HUMIRA [Suspect]
     Active Substance: ADALIMUMAB
     Dosage: DOSE INCREASED
     Route: 058

REACTIONS (9)
  - Drug level decreased [Recovering/Resolving]
  - Hepatotoxicity [Unknown]
  - Post procedural complication [Unknown]
  - Crohn^s disease [Recovering/Resolving]
  - Ileocaecal resection [Recovering/Resolving]
  - Ileal stenosis [Unknown]
  - Ileal perforation [Recovering/Resolving]
  - Ulcer [Unknown]
  - Therapeutic product effect incomplete [Recovering/Resolving]

NARRATIVE: CASE EVENT DATE: 20180306
